FAERS Safety Report 8760104 (Version 1)
Quarter: 2012Q4

REPORT INFORMATION
  Report Type: Spontaneous
  Country: US (occurrence: None)
  Receive Date: 20120828
  Receipt Date: 20120828
  Transmission Date: 20130627
  Serious: Yes (Life-Threatening)
  Sender: FDA-Public Use
  Company Number: None

PATIENT
  Age: 62 Year
  Sex: Female
  Weight: 96.62 kg

DRUGS (2)
  1. LANTUS [Suspect]
     Indication: TYPE 2 DIABETES MELLITUS
     Dates: start: 20120406, end: 20120713
  2. INSULIN GLARGINE [Suspect]

REACTIONS (8)
  - Palpitations [None]
  - Headache [None]
  - Wrong technique in drug usage process [None]
  - Pain [None]
  - Feeling abnormal [None]
  - Dysphonia [None]
  - Choking sensation [None]
  - Apparent death [None]
